FAERS Safety Report 5209216-8 (Version None)
Quarter: 2007Q1

REPORT INFORMATION
  Report Type: 
  Country: None (occurrence: None)
  Receive Date: 20070105
  Receipt Date: 20061222
  Transmission Date: 20070707
  Serious: Yes (Hospitalization, Other)
  Sender: FDA-Public Use
  Company Number: THYM-11152

PATIENT
  Age: 49 Year
  Sex: Male
  Weight: 103 kg

DRUGS (4)
  1. THYMOGLOBULIN [Suspect]
     Indication: RENAL TRANSPLANT
     Dosage: 1.5 MG/KG ONCE IV
     Route: 042
  2. TACROLIMUS [Concomitant]
  3. MYCOPHENOLATE MOFETIL [Concomitant]
  4. ZENAPAX [Concomitant]

REACTIONS (7)
  - COMPLICATIONS OF TRANSPLANTED KIDNEY [None]
  - HYPOTENSION [None]
  - NEPHROPATHY TOXIC [None]
  - PERITONEAL DIALYSIS [None]
  - PROCEDURAL HYPOTENSION [None]
  - PYREXIA [None]
  - RENAL INJURY [None]
